FAERS Safety Report 10890065 (Version 1)
Quarter: 2015Q1

REPORT INFORMATION
  Report Type: Spontaneous
  Country: US (occurrence: US)
  Receive Date: 20150305
  Receipt Date: 20150305
  Transmission Date: 20150721
  Serious: No
  Sender: FDA-Public Use
  Company Number: US-PFIZER INC-2015076556

PATIENT
  Age: 57 Year
  Sex: Male

DRUGS (1)
  1. SUTENT [Suspect]
     Active Substance: SUNITINIB MALATE
     Indication: COLON CANCER
     Dosage: 37.5 MG, DAILY
     Dates: start: 20140610

REACTIONS (3)
  - Headache [Unknown]
  - Product use issue [Unknown]
  - Nausea [Unknown]
